FAERS Safety Report 8043296-X (Version None)
Quarter: 2012Q1

REPORT INFORMATION
  Report Type: 
  Country: None (occurrence: None)
  Receive Date: 20120112
  Receipt Date: 20120104
  Transmission Date: 20120608
  Serious: Yes (Hospitalization)
  Sender: FDA-Public Use
  Company Number: US-GLAXOSMITHKLINE-A0944172A

PATIENT
  Age: 16 Year
  Sex: Male

DRUGS (1)
  1. ADVAIR DISKUS 100/50 [Suspect]
     Indication: CHRONIC OBSTRUCTIVE PULMONARY DISEASE
     Dosage: 2PUFF TWICE PER DAY
     Route: 055
     Dates: end: 20110815

REACTIONS (10)
  - SCAR [None]
  - DYSPNOEA [None]
  - HYPERSENSITIVITY [None]
  - THROAT IRRITATION [None]
  - GENERAL PHYSICAL HEALTH DETERIORATION [None]
  - CANDIDIASIS [None]
  - TREMOR [None]
  - PAIN [None]
  - ANXIETY [None]
  - ADVERSE DRUG REACTION [None]
